FAERS Safety Report 4755480-9 (Version None)
Quarter: 2005Q3

REPORT INFORMATION
  Report Type: 
  Country: None (occurrence: None)
  Receive Date: 20050829
  Receipt Date: 20050812
  Transmission Date: 20060218
  Serious: Yes (Death)
  Sender: FDA-Public Use
  Company Number: 2005S1007696

PATIENT
  Age: 25 Year
  Sex: Male

DRUGS (2)
  1. CLOZAPINE [Suspect]
     Dosage: 50 MG; QD; PO
     Route: 048
     Dates: start: 20050714, end: 20050801
  2. CLOZAPINE [Suspect]
     Dosage: 200 MG; QD; PO
     Route: 048
     Dates: start: 20050714, end: 20050820

REACTIONS (1)
  - DEATH [None]
